FAERS Safety Report 6146554-9 (Version None)
Quarter: 2009Q2

REPORT INFORMATION
  Report Type: 
  Country: None (occurrence: None)
  Receive Date: 20090407
  Receipt Date: 20090330
  Transmission Date: 20091009
  Serious: Yes (Hospitalization, Disabling, Other)
  Sender: FDA-Public Use
  Company Number: US-MERCK-0809USA01525

PATIENT
  Age: 43 Year
  Sex: Female
  Weight: 49 kg

DRUGS (8)
  1. FOSAMAX [Suspect]
     Indication: OSTEOPOROSIS
     Route: 048
     Dates: start: 20060101, end: 20060801
  2. FOSAMAX [Suspect]
     Route: 065
     Dates: start: 20030101, end: 20060801
  3. ACTONEL [Suspect]
     Route: 065
     Dates: end: 20060101
  4. BACLOFEN [Concomitant]
     Route: 065
     Dates: start: 19990710, end: 20070329
  5. CYCLOBENZAPRINE HYDROCHLORIDE [Concomitant]
     Route: 065
     Dates: start: 19990825, end: 20061204
  6. TORSEMIDE [Concomitant]
     Route: 065
     Dates: start: 19990622, end: 20060705
  7. ACETAMINOPHEN AND HYDROCODONE BITARTRATE [Concomitant]
     Route: 065
     Dates: start: 20040528, end: 20061024
  8. CORTICOSTEROIDS (UNSPECIFIED) [Concomitant]
     Route: 065
     Dates: start: 19860101, end: 20070801

REACTIONS (34)
  - ADVERSE DRUG REACTION [None]
  - BACK INJURY [None]
  - BACK PAIN [None]
  - BURSITIS [None]
  - CACHEXIA [None]
  - CONVULSION [None]
  - COSTOCHONDRITIS [None]
  - DEHYDRATION [None]
  - DIZZINESS [None]
  - EXCORIATION [None]
  - FALL [None]
  - FRACTURE [None]
  - HEADACHE [None]
  - INJURY [None]
  - JAUNDICE [None]
  - JAW DISORDER [None]
  - JOINT CONTRACTURE [None]
  - JOINT DISLOCATION [None]
  - LIGAMENT SPRAIN [None]
  - LIMB INJURY [None]
  - MOOD SWINGS [None]
  - MOUTH ULCERATION [None]
  - MULTIPLE SCLEROSIS [None]
  - NECK PAIN [None]
  - NEURITIS [None]
  - OCCIPITAL NEURALGIA [None]
  - OSTEOARTHRITIS [None]
  - OSTEONECROSIS [None]
  - RENAL PAIN [None]
  - RESORPTION BONE INCREASED [None]
  - RIB FRACTURE [None]
  - STOMATITIS [None]
  - TENDONITIS [None]
  - TONGUE GEOGRAPHIC [None]
